FAERS Safety Report 24714514 (Version 1)
Quarter: 2024Q4

REPORT INFORMATION
  Report Type: Spontaneous
  Country: PR (occurrence: PR)
  Receive Date: 20241209
  Receipt Date: 20241209
  Transmission Date: 20250115
  Serious: Yes (Other)
  Sender: BRISTOL-MYERS SQUIBB COMPANY
  Company Number: PR-BRISTOL-MYERS SQUIBB COMPANY-2024-189175

PATIENT
  Age: 63 Year
  Sex: Female
  Weight: 92.99 kg

DRUGS (1)
  1. POMALYST [Suspect]
     Active Substance: POMALIDOMIDE
     Indication: Mantle cell lymphoma
     Dosage: TAKE ONE CAPSULE DAILY FOR21 DAYS EVERY 28 DAYS
     Route: 048
     Dates: start: 202403, end: 202411

REACTIONS (1)
  - Drug ineffective [Unknown]

NARRATIVE: CASE EVENT DATE: 20241203
